FAERS Safety Report 8847985 (Version 2)
Quarter: 2015Q3

REPORT INFORMATION
  Report Type: Report from Study
  Country: US (occurrence: US)
  Receive Date: 20121018
  Receipt Date: 20150824
  Transmission Date: 20151125
  Serious: Yes (Hospitalization, Other)
  Sender: FDA-Public Use
  Company Number: US-ROCHE-1140627

PATIENT
  Sex: Female

DRUGS (5)
  1. PROTROPIN [Suspect]
     Active Substance: SOMATREM
     Indication: GROWTH HORMONE DEFICIENCY
     Route: 058
  2. PROTROPIN [Suspect]
     Active Substance: SOMATREM
     Indication: DWARFISM
     Route: 058
  3. PROTROPIN [Suspect]
     Active Substance: SOMATREM
     Route: 058
  4. PROTROPIN [Suspect]
     Active Substance: SOMATREM
     Route: 058
  5. PROTROPIN [Suspect]
     Active Substance: SOMATREM
     Route: 058

REACTIONS (17)
  - Headache [Unknown]
  - Respiratory disorder [Unknown]
  - Dysuria [Unknown]
  - Pyrexia [Unknown]
  - Contusion [Unknown]
  - Diarrhoea [Unknown]
  - Sinusitis [Unknown]
  - Abdominal pain [Unknown]
  - Ear infection [Unknown]
  - Abnormal behaviour [Unknown]
  - Scoliosis [Unknown]
  - Arthralgia [Unknown]
  - Rhinorrhoea [Unknown]
  - Winged scapula [Unknown]
  - Asthenia [Unknown]
  - Thrombosis [Unknown]
  - Haemorrhage [Unknown]
